FAERS Safety Report 13438857 (Version 1)
Quarter: 2017Q2

REPORT INFORMATION
  Report Type: Spontaneous
  Country: US (occurrence: US)
  Receive Date: 20170413
  Receipt Date: 20170413
  Transmission Date: 20170830
  Serious: Yes (Other)
  Sender: FDA-Public Use
  Company Number: US-ROCHE-724465

PATIENT
  Age: 7 Year
  Sex: Male

DRUGS (2)
  1. CEFTRIAXONE SODIUM. [Suspect]
     Active Substance: CEFTRIAXONE SODIUM
     Indication: PYREXIA
     Route: 065
  2. AMIKACIN [Concomitant]
     Active Substance: AMIKACIN
     Route: 065

REACTIONS (1)
  - Haemolytic anaemia [Unknown]
